FAERS Safety Report 23129294 (Version 1)
Quarter: 2023Q4

REPORT INFORMATION
  Report Type: Report from Study
  Country: CA (occurrence: CA)
  Receive Date: 20231031
  Receipt Date: 20231031
  Transmission Date: 20240110
  Serious: Yes (Hospitalization, Other)
  Sender: FDA-Public Use
  Company Number: CA-TAKEDA-2023TUS104121

PATIENT
  Age: 62 Year
  Sex: Female

DRUGS (3)
  1. VEDOLIZUMAB [Suspect]
     Active Substance: VEDOLIZUMAB
     Indication: Colitis ulcerative
     Dosage: 300 MILLIGRAM
     Route: 042
     Dates: start: 20221021
  2. VAGIFEM [Concomitant]
     Active Substance: ESTRADIOL
     Dosage: 10 MICROGRAM, 2/WEEK
  3. APO-ALPRAZOLAM [Concomitant]
     Dosage: .25 MILLIGRAM

REACTIONS (1)
  - Gallbladder rupture [Recovered/Resolved]

NARRATIVE: CASE EVENT DATE: 20231003
